FAERS Safety Report 5088043-9 (Version None)
Quarter: 2006Q3

REPORT INFORMATION
  Report Type: 
  Country: None (occurrence: None)
  Receive Date: 20060821
  Receipt Date: 20060810
  Transmission Date: 20061208
  Serious: Yes (Hospitalization)
  Sender: FDA-Public Use
  Company Number: 228569

PATIENT
  Age: 48 Year
  Sex: Male

DRUGS (2)
  1. AVASTIN [Suspect]
     Indication: RECTAL CANCER
  2. ELOXATIN [Suspect]
     Indication: RECTAL CANCER
     Dosage: 160 MG, Q2W
     Dates: start: 20060417, end: 20060613

REACTIONS (1)
  - PANCREATITIS [None]
